FAERS Safety Report 5295811-7 (Version None)
Quarter: 2007Q2

REPORT INFORMATION
  Report Type: 
  Country: None (occurrence: None)
  Receive Date: 20070406
  Receipt Date: 20070323
  Transmission Date: 20071010
  Serious: Yes (Hospitalization)
  Sender: FDA-Public Use
  Company Number: PAR_1461_2007

PATIENT
  Age: 20 Year
  Sex: Male

DRUGS (4)
  1. IBUPROFEN [Suspect]
     Indication: HEADACHE
     Dosage: 400 MG PRN PO
     Route: 048
     Dates: start: 20070201, end: 20070210
  2. DICLOFENAC [Suspect]
     Indication: HEADACHE
     Dosage: 150 MG QDAY PO
     Route: 048
     Dates: start: 20070210, end: 20070212
  3. CHLORAMPHENICOL [Concomitant]
  4. AMOXICILLIN + CLAVULANATE POTASSIUM [Concomitant]

REACTIONS (1)
  - STEVENS-JOHNSON SYNDROME [None]
